FAERS Safety Report 8571536-7 (Version None)
Quarter: 2012Q3

REPORT INFORMATION
  Report Type: 
  Country: None (occurrence: None)
  Receive Date: 20120806
  Receipt Date: 20120730
  Transmission Date: 20120928
  Serious: Yes (Hospitalization)
  Sender: FDA-Public Use
  Company Number: PHEH2012US013244

PATIENT
  Sex: Female
  Weight: 89 kg

DRUGS (8)
  1. GLEEVEC [Suspect]
     Indication: CHRONIC MYELOID LEUKAEMIA
     Dosage: 400 MG, QD
     Route: 048
     Dates: start: 20120124
  2. PRINIVIL [Concomitant]
     Indication: HYPERTENSION
     Dosage: 40 MG, QD
     Route: 048
  3. PRAVACHOL [Concomitant]
     Indication: HYPERCHOLESTEROLAEMIA
     Dosage: 60 MG, QD
     Route: 048
  4. PROBENECID [Concomitant]
     Indication: GOUT
     Dosage: 500 MG, BID
     Route: 048
  5. METOPROLOL TARTRATE [Concomitant]
     Dosage: 50 MG, BID
     Route: 048
  6. LASIX [Concomitant]
     Indication: HYPERTENSION
     Dosage: 40 MG, QD
     Route: 048
  7. GLEEVEC [Suspect]
     Dosage: 400 MG, Q72H
     Route: 048
     Dates: start: 20120510
  8. NITROGLYCERIN [Concomitant]
     Indication: HYPERTENSION
     Dosage: 0.4 MG, PRN
     Route: 048

REACTIONS (7)
  - DIARRHOEA [None]
  - VOMITING [None]
  - DEHYDRATION [None]
  - FATIGUE [None]
  - HYPOPHAGIA [None]
  - HYPOTENSION [None]
  - NAUSEA [None]
